FAERS Safety Report 5451282-9 (Version None)
Quarter: 2007Q3

REPORT INFORMATION
  Report Type: 
  Country: None (occurrence: None)
  Receive Date: 20070913
  Receipt Date: 20070905
  Transmission Date: 20080115
  Serious: Yes (Other)
  Sender: FDA-Public Use
  Company Number: BR-ASTRAZENECA-2007UW21076

PATIENT
  Age: 64 Year
  Sex: Female
  Weight: 54 kg

DRUGS (3)
  1. CRESTOR [Suspect]
     Indication: HYPERCHOLESTEROLAEMIA
     Route: 048
     Dates: start: 20060101
  2. CRESTOR [Suspect]
     Route: 048
     Dates: start: 20070701, end: 20070701
  3. CRESTOR [Suspect]
     Route: 048
     Dates: start: 20070101

REACTIONS (7)
  - ABDOMINAL PAIN [None]
  - AGEUSIA [None]
  - DRY MOUTH [None]
  - INTESTINAL HAEMORRHAGE [None]
  - MALAISE [None]
  - MYALGIA [None]
  - NAUSEA [None]
